FAERS Safety Report 6880846-0 (Version None)
Quarter: 2010Q3

REPORT INFORMATION
  Report Type: 
  Country: None (occurrence: None)
  Receive Date: 20100728
  Receipt Date: 20100716
  Transmission Date: 20110219
  Serious: Yes (Hospitalization)
  Sender: FDA-Public Use
  Company Number: JP-SANOFI-AVENTIS-2010SA041996

PATIENT
  Sex: Male

DRUGS (2)
  1. LASIX [Suspect]
     Indication: OEDEMA
     Route: 048
     Dates: start: 20100401, end: 20100501
  2. AVAPRO [Concomitant]

REACTIONS (2)
  - HEPATIC FUNCTION ABNORMAL [None]
  - HEPATITIS C [None]
